FAERS Safety Report 5169336-3 (Version None)
Quarter: 2006Q4

REPORT INFORMATION
  Report Type: 
  Country: None (occurrence: None)
  Receive Date: 20061201
  Receipt Date: 20061121
  Transmission Date: 20070319
  Serious: Yes (Disabling)
  Sender: FDA-Public Use
  Company Number: 2006-149931-NL

PATIENT
  Age: 25 Year
  Sex: Male

DRUGS (2)
  1. MIRTAZAPINE [Suspect]
     Indication: DEPRESSION
     Dosage: 30 MG
     Route: 048
     Dates: start: 20040123
  2. ALCOHOL [Suspect]

REACTIONS (4)
  - AGITATION [None]
  - ALCOHOLISM [None]
  - FLASHBACK [None]
  - PYROMANIA [None]
